FAERS Safety Report 21833388 (Version 1)
Quarter: 2023Q1

REPORT INFORMATION
  Report Type: Spontaneous
  Country: BR (occurrence: BR)
  Receive Date: 20230107
  Receipt Date: 20230107
  Transmission Date: 20230418
  Serious: Yes (Hospitalization, Other)
  Sender: FDA-Public Use
  Company Number: BR-002147023-NVSC2022BR297839

PATIENT
  Sex: Female
  Weight: 58 kg

DRUGS (19)
  1. FEMARA [Suspect]
     Active Substance: LETROZOLE
     Indication: Breast cancer
     Dosage: 1 DOSAGE FORM, QD, (STRENGTH: 2.5, 28 CAPSULES)
     Route: 065
     Dates: start: 20180601
  2. FEMARA [Suspect]
     Active Substance: LETROZOLE
     Dosage: 1 DOSAGE FORM, QD
     Route: 065
     Dates: start: 2019
  3. CHELATED MAGNESIUM [Concomitant]
     Indication: Product used for unknown indication
     Dosage: 1 DOSAGE FORM, QD
     Route: 065
  4. CHELATED MAGNESIUM [Concomitant]
     Dosage: 1 DOSAGE FORM, QD
     Route: 048
     Dates: start: 2018
  5. PURAN [Concomitant]
     Active Substance: LEVOTHYROXINE SODIUM
     Indication: Thyroid disorder
     Dosage: 1 DOSAGE FORM, QD, (ON AN EMPTY STOMACH IN THE MORNING)
     Route: 065
  6. PURAN [Concomitant]
     Active Substance: LEVOTHYROXINE SODIUM
     Dosage: 1 DOSAGE FORM, QD
     Route: 065
     Dates: start: 2018
  7. CALCITRIOL [Concomitant]
     Active Substance: CALCITRIOL
     Indication: Product used for unknown indication
     Dosage: 2 DOSAGE FORM, QD
     Route: 065
  8. CALCITRIOL [Concomitant]
     Active Substance: CALCITRIOL
     Dosage: 1 DOSAGE FORM, BID
     Route: 065
     Dates: start: 2018
  9. ENALAPRIL MALEATE [Concomitant]
     Active Substance: ENALAPRIL MALEATE
     Indication: Blood pressure measurement
     Dosage: 1 DOSAGE FORM, (IN THE MORNING)
     Route: 065
  10. ENALAPRIL MALEATE [Concomitant]
     Active Substance: ENALAPRIL MALEATE
     Dosage: 1 DOSAGE FORM, QD
     Route: 048
     Dates: start: 2018
  11. OSCAL D [Concomitant]
     Active Substance: CALCIUM CARBONATE\CHOLECALCIFEROL
     Indication: Product used for unknown indication
     Dosage: 1 DOSAGE FORM, (AT LUNCH)
     Route: 065
  12. OSCAL D [Concomitant]
     Active Substance: CALCIUM CARBONATE\CHOLECALCIFEROL
     Dosage: 1 DOSAGE FORM, QD
     Route: 065
     Dates: start: 2018
  13. FOSFOMYCIN [Concomitant]
     Active Substance: FOSFOMYCIN
     Indication: Urinary tract infection
     Dosage: UNK, (1 SACHET AT NIGHT FOR 10 DAYS AND BREAK FOR 10 DAYS)
     Route: 065
  14. FUROSEMIDE [Concomitant]
     Active Substance: FUROSEMIDE
     Indication: Lymphadenitis
     Dosage: 1 DOSAGE FORM, QD, (BECAUSE SHE REMOVED THE LYMPH NODES FROM UNDER HER ARMS, WHERE THEY BECAME INFLA
     Route: 065
  15. FUROSEMIDE [Concomitant]
     Active Substance: FUROSEMIDE
     Indication: Prophylaxis
     Dosage: 1 DOSAGE FORM, ONLY WHEN SHE IS SWOLLEN
     Route: 048
     Dates: start: 2018
  16. IBRANCE [Concomitant]
     Active Substance: PALBOCICLIB
     Indication: Breast cancer
     Dosage: 1 DOSAGE FORM, QD, (FOR 21 DAYS, THEN A BREAK FOR 8 DAYS)
     Route: 065
  17. IBRANCE [Concomitant]
     Active Substance: PALBOCICLIB
     Dosage: 1 DOSAGE FORM, QD
     Route: 048
     Dates: start: 2018
  18. AS-MED [Concomitant]
     Indication: Product used for unknown indication
     Dosage: 1 DOSAGE FORM, QD
     Route: 065
  19. ATORVASTATIN CALCIUM [Concomitant]
     Active Substance: ATORVASTATIN CALCIUM
     Indication: Product used for unknown indication
     Dosage: 1 DOSAGE FORM, QD
     Route: 065

REACTIONS (7)
  - Chronic kidney disease [Recovering/Resolving]
  - Cerebrovascular accident [Recovered/Resolved]
  - Retching [Recovered/Resolved]
  - Nausea [Recovered/Resolved]
  - Dizziness [Recovered/Resolved]
  - Vitamin D decreased [Recovering/Resolving]
  - Anaemia [Not Recovered/Not Resolved]

NARRATIVE: CASE EVENT DATE: 20190101
